FAERS Safety Report 10151023 (Version 2)
Quarter: 2014Q2

REPORT INFORMATION
  Report Type: Spontaneous
  Country: US (occurrence: US)
  Receive Date: 20140502
  Receipt Date: 20140529
  Transmission Date: 20141212
  Serious: Yes (Disabling, Other)
  Sender: FDA-Public Use
  Company Number: US-PFIZER INC-2014120857

PATIENT
  Age: 50 Year
  Sex: Male
  Weight: 109 kg

DRUGS (5)
  1. ALPRAZOLAM [Suspect]
     Indication: PANIC ATTACK
     Dosage: 2 MG, IN THE MORNING
  2. ALPRAZOLAM [Suspect]
     Dosage: 6 MG, 1X/DAY
     Route: 048
  3. ALPRAZOLAM [Suspect]
     Indication: PANIC ATTACK
     Dosage: UNK
  4. MIRAPEX [Suspect]
     Dosage: UNK
  5. ZOLOFT [Concomitant]
     Indication: DEPRESSION
     Dosage: UNK

REACTIONS (7)
  - Drug withdrawal convulsions [Unknown]
  - Withdrawal syndrome [Unknown]
  - Weight decreased [Unknown]
  - Drug ineffective [Unknown]
  - Tremor [Unknown]
  - Anxiety [Unknown]
  - Drug tolerance [Unknown]
